FAERS Safety Report 4964558-6 (Version None)
Quarter: 2006Q2

REPORT INFORMATION
  Report Type: 
  Country: None (occurrence: None)
  Receive Date: 20060406
  Receipt Date: 20060331
  Transmission Date: 20061013
  Serious: Yes (Hospitalization)
  Sender: FDA-Public Use
  Company Number: FR-GLAXOSMITHKLINE-B0419002A

PATIENT
  Age: 77 Year
  Sex: Female

DRUGS (6)
  1. AVANDIA [Suspect]
     Dosage: 4MG PER DAY
     Route: 048
  2. PREVISCAN [Suspect]
     Dosage: .5UNIT PER DAY
     Route: 048
  3. TAHOR [Suspect]
     Dosage: 80MG PER DAY
     Route: 048
  4. MOVICOL [Suspect]
     Dosage: 1UNIT PER DAY
     Route: 048
  5. SIBELIUM [Suspect]
     Dosage: 1UNIT PER DAY
     Route: 048
  6. TRANXENE [Suspect]
     Dosage: 1UNIT PER DAY
     Route: 048

REACTIONS (5)
  - COAGULATION TIME PROLONGED [None]
  - DIVERTICULUM INTESTINAL [None]
  - EPISTAXIS [None]
  - HAEMORRHOIDS [None]
  - RECTAL HAEMORRHAGE [None]
